FAERS Safety Report 17472747 (Version 1)
Quarter: 2020Q1

REPORT INFORMATION
  Report Type: Spontaneous
  Country: US (occurrence: US)
  Receive Date: 20200217
  Receipt Date: 20200217
  Transmission Date: 20200409
  Serious: No
  Sender: FDA-Public Use
  Company Number: None

PATIENT
  Age: 67 Year
  Sex: Male

DRUGS (1)
  1. PREGABALIN (PREGABALIN 75MG CAP ORAL) [Suspect]
     Active Substance: PREGABALIN
     Indication: PAIN
     Route: 048
     Dates: start: 20181103, end: 20181203

REACTIONS (3)
  - Mood swings [None]
  - Headache [None]
  - Hallucination [None]

NARRATIVE: CASE EVENT DATE: 20181201
